FAERS Safety Report 17091789 (Version 1)
Quarter: 2019Q4

REPORT INFORMATION
  Report Type: Spontaneous
  Country: US (occurrence: US)
  Receive Date: 20191031
  Receipt Date: 20191031
  Transmission Date: 20200122
  Serious: Yes (Hospitalization)
  Sender: FDA-Public Use
  Company Number: None

PATIENT
  Age: 67 Year
  Sex: Male
  Weight: 89.36 kg

DRUGS (1)
  1. ALLOPURINOL. [Suspect]
     Active Substance: ALLOPURINOL
     Indication: GOUT
     Route: 048
     Dates: start: 20190624, end: 20190710

REACTIONS (5)
  - Agranulocytosis [None]
  - Rash pruritic [None]
  - Neutropenia [None]
  - Pyrexia [None]
  - Leukopenia [None]

NARRATIVE: CASE EVENT DATE: 20190710
